FAERS Safety Report 10313267 (Version 2)
Quarter: 2014Q3

REPORT INFORMATION
  Report Type: Spontaneous
  Country: US (occurrence: US)
  Receive Date: 20140718
  Receipt Date: 20140804
  Transmission Date: 20150326
  Serious: Yes (Other)
  Sender: FDA-Public Use
  Company Number: US-BAYER-2014-106365

PATIENT
  Age: 21 Year
  Sex: Female

DRUGS (2)
  1. MIRENA [Suspect]
     Active Substance: LEVONORGESTREL
     Indication: CONTRACEPTION
     Dosage: 20 MCG/24HR, CONT
     Route: 015
     Dates: start: 201310, end: 201407
  2. MIRENA [Suspect]
     Active Substance: LEVONORGESTREL
     Indication: CONTRACEPTION
     Dosage: 20 MCG/24HR, CONT
     Route: 015
     Dates: start: 201310, end: 201310

REACTIONS (10)
  - Genital haemorrhage [Not Recovered/Not Resolved]
  - Genital haemorrhage [None]
  - Abdominal pain lower [Not Recovered/Not Resolved]
  - Breast swelling [Not Recovered/Not Resolved]
  - Dyspareunia [None]
  - Device expulsion [None]
  - Device expulsion [Recovered/Resolved]
  - Premenstrual syndrome [Not Recovered/Not Resolved]
  - Weight increased [None]
  - Abdominal pain lower [None]

NARRATIVE: CASE EVENT DATE: 201310
